FAERS Safety Report 7091301-X (Version None)
Quarter: 2010Q4

REPORT INFORMATION
  Report Type: 
  Country: None (occurrence: None)
  Receive Date: 20101109
  Receipt Date: 20101104
  Transmission Date: 20110411
  Serious: Yes (Life-Threatening)
  Sender: FDA-Public Use
  Company Number: US-GENZYME-MOZO-1000438

PATIENT
  Sex: Female

DRUGS (4)
  1. MOZOBIL [Suspect]
     Indication: ACUTE MYELOID LEUKAEMIA
     Dosage: 4 MG, ONCE
     Route: 042
     Dates: start: 20101008, end: 20101008
  2. FLUDARABINE [Concomitant]
     Indication: BONE MARROW CONDITIONING REGIMEN
  3. THIOTEPA [Concomitant]
     Indication: BONE MARROW CONDITIONING REGIMEN
  4. MELPHALAN HYDROCHLORIDE [Concomitant]
     Indication: BONE MARROW CONDITIONING REGIMEN

REACTIONS (1)
  - VENOOCCLUSIVE LIVER DISEASE [None]
